FAERS Safety Report 4317352-3 (Version None)
Quarter: 2004Q1

REPORT INFORMATION
  Report Type: 
  Country: None (occurrence: None)
  Receive Date: 20040305
  Receipt Date: 20040107
  Transmission Date: 20041129
  Serious: No
  Sender: FDA-Public Use
  Company Number: US-SHR-03-017336

PATIENT
  Age: 50 Year
  Sex: Male
  Weight: 94.8 kg

DRUGS (15)
  1. CAMPATH [Suspect]
     Indication: CHRONIC LYMPHOCYTIC LEUKAEMIA
     Dosage: SEE IMAGE
     Route: 042
     Dates: start: 20030929, end: 20031003
  2. CAMPATH [Suspect]
     Indication: CHRONIC LYMPHOCYTIC LEUKAEMIA
     Dosage: SEE IMAGE
     Route: 042
     Dates: start: 20031006, end: 20031010
  3. CAMPATH [Suspect]
     Indication: CHRONIC LYMPHOCYTIC LEUKAEMIA
     Dosage: SEE IMAGE
     Route: 042
     Dates: start: 20031013, end: 20031013
  4. BENADRYL [Concomitant]
  5. TYLENOL (CAPLET) [Concomitant]
  6. ZOFRAN [Concomitant]
  7. VALTREX [Concomitant]
  8. BACTRIM [Concomitant]
  9. FLUCONAZOLE [Concomitant]
  10. DILANTIN [Concomitant]
  11. CELONTIN [Concomitant]
  12. PEPCID [Concomitant]
  13. FOLATE SODIUM (FOLATE SODIUM) [Concomitant]
  14. ATIVAN [Concomitant]
  15. TOPROL-XL [Concomitant]

REACTIONS (2)
  - DERMATITIS BULLOUS [None]
  - RASH [None]
